FAERS Safety Report 7888187-X (Version None)
Quarter: 2011Q4

REPORT INFORMATION
  Report Type: 
  Country: None (occurrence: None)
  Receive Date: 20111101
  Receipt Date: 20111025
  Transmission Date: 20120403
  Serious: Yes (Other)
  Sender: FDA-Public Use
  Company Number: AUR-APL-2011-05579

PATIENT
  Age: 73 Year
  Sex: Female
  Weight: 72.5755 kg

DRUGS (15)
  1. XENAZINE [Concomitant]
  2. PROAIR (FLUTICASONE PROPIONATE) [Concomitant]
  3. FLUTICASONE PROPIONATE [Concomitant]
  4. TRAMADOL HCL [Concomitant]
  5. HYDROCHLOROTHIAZIDE [Concomitant]
  6. AMLODIPINE [Concomitant]
  7. LORATADINE [Concomitant]
  8. ASPIRIN [Concomitant]
  9. OMEPRAZOLE [Concomitant]
  10. LOVASTATIN [Concomitant]
  11. LEVOTHYROXINE SODIUM [Concomitant]
  12. LEXAPRO [Concomitant]
  13. ZOLPIDEM [Suspect]
     Indication: DYSTONIA
     Dosage: 30 MG (10 MG,3 IN 1 D),ORAL
     Route: 048
     Dates: start: 20110701
  14. ZOLPIDEM [Suspect]
     Indication: DYSKINESIA
     Dosage: 30 MG (10 MG,3 IN 1 D),ORAL
     Route: 048
     Dates: start: 20110701
  15. ADVAIR DISKUS 100/50 [Concomitant]

REACTIONS (2)
  - DRUG EFFECT DECREASED [None]
  - PRODUCT SUBSTITUTION ISSUE [None]
